FAERS Safety Report 21065156 (Version 5)
Quarter: 2022Q3

REPORT INFORMATION
  Report Type: Report from Study
  Country: US (occurrence: US)
  Receive Date: 20220711
  Receipt Date: 20220901
  Transmission Date: 20221027
  Serious: No
  Sender: FDA-Public Use
  Company Number: US-AMGEN-USASL2022109297

PATIENT
  Age: 69 Year
  Sex: Female
  Weight: 87.982 kg

DRUGS (2)
  1. NEULASTA [Suspect]
     Active Substance: PEGFILGRASTIM
     Indication: Lung neoplasm malignant
     Dosage: 6 MILLIGRAM
     Route: 065
     Dates: start: 20211015
  2. NEULASTA [Suspect]
     Active Substance: PEGFILGRASTIM
     Dosage: 6 MILLIGRAM
     Route: 065
     Dates: start: 20211015

REACTIONS (2)
  - Fall [Unknown]
  - Device adhesion issue [Unknown]

NARRATIVE: CASE EVENT DATE: 20220501
